FAERS Safety Report 8608967 (Version 2)
Quarter: 2014Q1

REPORT INFORMATION
  Report Type: Spontaneous
  Country: GB (occurrence: GB)
  Receive Date: 20120611
  Receipt Date: 20140307
  Transmission Date: 20141002
  Serious: Yes (Life-Threatening)
  Sender: FDA-Public Use
  Company Number: US-ASTRAZENECA-2012SE38132

PATIENT
  Age: 43 Year
  Sex: Female

DRUGS (4)
  1. QUETIAPINE [Suspect]
     Indication: SCHIZOAFFECTIVE DISORDER
     Route: 048
  2. METOPROLOL [Suspect]
  3. FRUSEMIDE [Suspect]
  4. HYDRALAZINE [Suspect]

REACTIONS (4)
  - Exposure during pregnancy [Recovered/Resolved]
  - Peripartum cardiomyopathy [Unknown]
  - Cardiac arrest [Recovered/Resolved]
  - Premature baby [Unknown]
